FAERS Safety Report 8096353-6 (Version None)
Quarter: 2012Q1

REPORT INFORMATION
  Report Type: 
  Country: None (occurrence: None)
  Receive Date: 20120131
  Receipt Date: 20120124
  Transmission Date: 20120608
  Serious: Yes (Disabling)
  Sender: FDA-Public Use
  Company Number: PHHY2011FR108868

PATIENT
  Sex: Male

DRUGS (3)
  1. PERMIXON [Concomitant]
     Dosage: 1 DF, DAILY
  2. SIMVASTATIN [Suspect]
     Indication: HYPERCHOLESTEROLAEMIA
     Dosage: 20 MG, DAILY
     Route: 048
     Dates: start: 20061229
  3. IRBESARTAN [Concomitant]
     Dosage: 1 DF, DAILY

REACTIONS (9)
  - PARALYSIS [None]
  - EXOSTOSIS [None]
  - OSTEOARTHRITIS [None]
  - PARAESTHESIA [None]
  - MUSCULOSKELETAL PAIN [None]
  - MIDDLE INSOMNIA [None]
  - MONOPARESIS [None]
  - PAIN IN EXTREMITY [None]
  - CERVICOBRACHIAL SYNDROME [None]
